FAERS Safety Report 10290495 (Version 2)
Quarter: 2014Q3

REPORT INFORMATION
  Report Type: Report from Study
  Country: AU (occurrence: AU)
  Receive Date: 20140710
  Receipt Date: 20140710
  Transmission Date: 20150326
  Serious: Yes (Other)
  Sender: FDA-Public Use
  Company Number: PHHY2014AU019432

PATIENT
  Age: 85 Year
  Sex: Female

DRUGS (30)
  1. CEPHALEXIN. [Concomitant]
     Active Substance: CEPHALEXIN
     Dosage: 1 DF, TID, AFTER MEAL
  2. EFUDIX [Concomitant]
     Active Substance: FLUOROURACIL
     Dosage: 2 DF, BID
     Route: 061
  3. FLUVAX [Concomitant]
     Active Substance: INFLUENZA VIRUS VACCINE
     Indication: INFLUENZA
     Dosage: UNK UKN, UNK
     Dates: start: 20110310
  4. COLOXYL WITH SENNA [Concomitant]
     Active Substance: DOCUSATE\SENNOSIDES
     Dosage: 1 DF, EVENING
  5. COUMADINE [Concomitant]
     Active Substance: WARFARIN SODIUM
     Dosage: 2 MG, UNK
  6. VITA-D [Concomitant]
     Dosage: 1 DF, IN THE MORNING
  7. BION TEARS [Concomitant]
     Active Substance: DEXTRAN 70\HYPROMELLOSE 2910 (4000 MPA.S)
     Dosage: 1 DF, TID, BOTH SIDES
     Route: 047
  8. CLOTRIMAZOLE. [Concomitant]
     Active Substance: CLOTRIMAZOLE
     Dosage: AS DIRECTED
     Route: 067
  9. COUMADINE [Concomitant]
     Active Substance: WARFARIN SODIUM
     Dosage: 1 MG, UNK
  10. PANADOL [Concomitant]
     Active Substance: ACETAMINOPHEN
     Dosage: 2 DF, BID
  11. ACLASTA [Suspect]
     Active Substance: ZOLEDRONIC ACID
     Dosage: 5 MG, UNK
     Route: 042
     Dates: start: 20101129
  12. ACLASTA [Suspect]
     Active Substance: ZOLEDRONIC ACID
     Dosage: 5 MG, UNK
     Route: 042
     Dates: start: 20111221
  13. ACLASTA [Suspect]
     Active Substance: ZOLEDRONIC ACID
     Dosage: 5 MG, UNK
     Route: 042
     Dates: start: 20130220
  14. REFRESH CELLUVISC [Concomitant]
     Active Substance: CARBOXYMETHYLCELLULOSE SODIUM
     Dosage: 2 DF, TID
     Route: 047
  15. NORSPAN [Concomitant]
     Active Substance: BUPRENORPHINE
     Dosage: 1 DF, PER WEEK
     Route: 062
  16. DITROPAN [Concomitant]
     Active Substance: OXYBUTYNIN CHLORIDE
     Dosage: HALF TABLET IN THE EVENING
  17. ENDONE [Concomitant]
     Active Substance: OXYCODONE HYDROCHLORIDE
     Dosage: UNK UKN, PRN
  18. GENTEAL (HYPROMELLOSE) [Concomitant]
     Dosage: 1 DF, BID, BOTH SIDES
     Route: 047
  19. QV BATH [Concomitant]
     Dosage: UNK UKN, MDU
  20. VALPROATE SODIUM. [Concomitant]
     Active Substance: VALPROATE SODIUM
     Dosage: 1 DF, BID
  21. MIRTAZAPINE. [Concomitant]
     Active Substance: MIRTAZAPINE
     Dosage: IN THE EVENING,  PRN
  22. FLUVAX [Concomitant]
     Active Substance: INFLUENZA VIRUS VACCINE
     Dosage: UNK
     Dates: start: 20140312
  23. OXAZEPAM. [Concomitant]
     Active Substance: OXAZEPAM
     Dosage: 1 DF, BEFORE BED
  24. PANAMAX [Concomitant]
     Active Substance: ACETAMINOPHEN
     Dosage: 2 DF, TID, PRN
  25. ACTILAX [Concomitant]
     Active Substance: LACTULOSE
     Dosage: 15 ML, BID PRN, 3.34G/ML
  26. ATROVENT [Concomitant]
     Active Substance: IPRATROPIUM BROMIDE
     Dosage: 1 DF, QD BOTH SIDE, 21 MCG/SPRAY
     Route: 045
  27. COUMADINE [Concomitant]
     Active Substance: WARFARIN SODIUM
     Dosage: 5 MG, UNK
  28. HAMILTON SKIN REPAIR [Concomitant]
     Dosage: UNK UKN, PRN, WASH
  29. FLUVAX [Concomitant]
     Active Substance: INFLUENZA VIRUS VACCINE
     Dosage: UNK
     Dates: start: 20120315
  30. VAXIGRIP [Concomitant]
     Active Substance: INFLUENZA VIRUS VACCINE
     Indication: INFLUENZA
     Dosage: UNK
     Dates: start: 20130321

REACTIONS (33)
  - Cerebrovascular accident [Unknown]
  - Osteoporosis [Unknown]
  - Humerus fracture [Unknown]
  - Red blood cell count decreased [Recovered/Resolved]
  - Pain [Unknown]
  - Globulins decreased [Recovered/Resolved]
  - Red cell distribution width increased [Unknown]
  - Nocturia [Unknown]
  - Bladder outlet obstruction [Unknown]
  - Femoral neck fracture [Unknown]
  - Blood uric acid increased [Not Recovered/Not Resolved]
  - Mean cell haemoglobin increased [Unknown]
  - Red blood cell sedimentation rate increased [Unknown]
  - Urinary tract infection [Unknown]
  - Dry eye [Unknown]
  - Osteoarthritis [Unknown]
  - Obesity [Unknown]
  - Multiple fractures [Unknown]
  - Atrial fibrillation [Unknown]
  - Angioedema [Unknown]
  - Blood triglycerides increased [Not Recovered/Not Resolved]
  - Blood cholesterol increased [Not Recovered/Not Resolved]
  - Macrocytosis [Unknown]
  - Urinary incontinence [Unknown]
  - Constipation [Unknown]
  - Hemiparesis [Unknown]
  - Glomerular filtration rate decreased [Not Recovered/Not Resolved]
  - C-reactive protein increased [Unknown]
  - Rhinitis [Unknown]
  - Candida infection [Unknown]
  - Blood calcium increased [Not Recovered/Not Resolved]
  - Lymphocyte count decreased [Recovered/Resolved]
  - Dry skin [Unknown]

NARRATIVE: CASE EVENT DATE: 20110518
